FAERS Safety Report 25351814 (Version 1)
Quarter: 2025Q2

REPORT INFORMATION
  Report Type: Report from Study
  Country: GB (occurrence: GB)
  Receive Date: 20250523
  Receipt Date: 20250523
  Transmission Date: 20250717
  Serious: Yes (Other)
  Sender: BAXTER
  Company Number: GB-BAXTER-2025BAX015619

PATIENT
  Sex: Male

DRUGS (12)
  1. WATER FOR INJECTION [Suspect]
     Active Substance: WATER
     Route: 065
     Dates: start: 20250514, end: 20250515
  2. CERNEVIT [Suspect]
     Active Substance: VITAMINS
     Indication: Parenteral nutrition
     Route: 065
     Dates: start: 20250514, end: 20250515
  3. DEXTROSE [Suspect]
     Active Substance: DEXTROSE MONOHYDRATE
     Indication: Parenteral nutrition
     Route: 065
     Dates: start: 20250514, end: 20250515
  4. SYNTHAMIN [Suspect]
     Active Substance: AMINO ACIDS
     Indication: Parenteral nutrition
     Route: 065
     Dates: start: 20250514, end: 20250515
  5. UNSPECIFIED INGREDIENT [Suspect]
     Active Substance: UNSPECIFIED INGREDIENT
     Route: 065
  6. ELECTROLYTES NOS\MINERALS [Suspect]
     Active Substance: ELECTROLYTES NOS\MINERALS
     Indication: Parenteral nutrition
     Route: 065
     Dates: start: 20250514, end: 20250515
  7. CALCIUM CHLORIDE [Suspect]
     Active Substance: CALCIUM CHLORIDE
     Indication: Parenteral nutrition
     Route: 065
     Dates: start: 20250514, end: 20250515
  8. MAGNESIUM SULFATE [Suspect]
     Active Substance: MAGNESIUM SULFATE
     Indication: Parenteral nutrition
     Route: 065
     Dates: start: 20250514, end: 20250515
  9. POTASSIUM CHLORIDE [Suspect]
     Active Substance: POTASSIUM CHLORIDE
     Indication: Parenteral nutrition
     Route: 065
     Dates: start: 20250514, end: 20250515
  10. SODIUM CHLORIDE [Suspect]
     Active Substance: SODIUM CHLORIDE
     Indication: Parenteral nutrition
     Route: 065
     Dates: start: 20250514, end: 20250515
  11. SODIUM GLYCEROPHOSPHATE [Suspect]
     Active Substance: SODIUM GLYCEROPHOSPHATE
     Indication: Parenteral nutrition
     Route: 065
     Dates: start: 20250514, end: 20250515
  12. WATER FOR INJECTION [Suspect]
     Active Substance: WATER
     Route: 065
     Dates: start: 20250514, end: 20250515

REACTIONS (1)
  - Faecal vomiting [Not Recovered/Not Resolved]
